FAERS Safety Report 12936151 (Version 1)
Quarter: 2016Q4

REPORT INFORMATION
  Report Type: Spontaneous
  Country: US (occurrence: US)
  Receive Date: 20161111
  Receipt Date: 20161111
  Transmission Date: 20170207
  Serious: Yes (Other)
  Sender: FDA-Public Use
  Company Number: None

PATIENT
  Age: 36 Year
  Weight: 54 kg

DRUGS (5)
  1. SPIRONOLACTONE. [Concomitant]
     Active Substance: SPIRONOLACTONE
  2. BUPROPIN [Suspect]
     Active Substance: BUPROPION
     Indication: DEPRESSION
     Route: 048
  3. PROZAC [Concomitant]
     Active Substance: FLUOXETINE HYDROCHLORIDE
  4. BUPROPIN [Suspect]
     Active Substance: BUPROPION
     Indication: ANXIETY
     Route: 048
  5. BIOTIN [Concomitant]
     Active Substance: BIOTIN

REACTIONS (5)
  - Alopecia [None]
  - Stress [None]
  - Crying [None]
  - Anxiety [None]
  - Depression [None]

NARRATIVE: CASE EVENT DATE: 20160918
